FAERS Safety Report 9894720 (Version 5)
Quarter: 2015Q1

REPORT INFORMATION
  Report Type: Spontaneous
  Country: US (occurrence: US)
  Receive Date: 20140213
  Receipt Date: 20150129
  Transmission Date: 20150721
  Serious: Yes (Death, Life-Threatening, Hospitalization, Other)
  Sender: FDA-Public Use
  Company Number: US-MERCK-1402USA005844

PATIENT
  Sex: Female
  Weight: 63.49 kg

DRUGS (3)
  1. JANUMET [Suspect]
     Active Substance: METFORMIN HYDROCHLORIDE\SITAGLIPTIN PHOSPHATE
     Dosage: 50/1000MG, UNK
     Route: 048
     Dates: start: 20090730, end: 20101111
  2. JANUMET [Suspect]
     Active Substance: METFORMIN HYDROCHLORIDE\SITAGLIPTIN PHOSPHATE
     Indication: TYPE 2 DIABETES MELLITUS
     Dosage: 50-500 MG, BID
     Route: 048
     Dates: start: 20070627, end: 20090423
  3. JANUVIA [Suspect]
     Active Substance: SITAGLIPTIN PHOSPHATE
     Indication: TYPE 2 DIABETES MELLITUS
     Dosage: 100 MG, QD
     Route: 048
     Dates: start: 20101117, end: 20130430

REACTIONS (15)
  - Pancreatic carcinoma metastatic [Fatal]
  - Cataract operation [Unknown]
  - Hypothyroidism [Unknown]
  - Hepatic enzyme increased [Unknown]
  - Gallbladder disorder [Unknown]
  - Biopsy liver [Unknown]
  - Stent placement [Unknown]
  - Biliary tract disorder [Unknown]
  - Hyperbilirubinaemia [Unknown]
  - Hyperlipidaemia [Unknown]
  - Stent placement [Unknown]
  - Pancreatitis [Unknown]
  - Metastases to liver [Unknown]
  - Normochromic normocytic anaemia [Unknown]
  - Appendicectomy [Unknown]

NARRATIVE: CASE EVENT DATE: 20110420
